FAERS Safety Report 5964078-6 (Version None)
Quarter: 2008Q4

REPORT INFORMATION
  Report Type: 
  Country: None (occurrence: None)
  Receive Date: 20081124
  Receipt Date: 20081120
  Transmission Date: 20090506
  Serious: Yes (Death, Other)
  Sender: FDA-Public Use
  Company Number: GB-ASTRAZENECA-2008GB02190

PATIENT
  Age: 40 Year
  Sex: Male

DRUGS (4)
  1. LISINOPRIL [Suspect]
     Indication: HYPERTENSION
     Route: 048
     Dates: start: 20060601, end: 20060101
  2. APROVEL [Suspect]
     Indication: HYPERTENSION
     Route: 065
     Dates: start: 20070901
  3. PERINDOPRIL [Suspect]
     Indication: CHEST PAIN
     Route: 065
     Dates: start: 20060101, end: 20060101
  4. RAMIPRIL [Suspect]
     Indication: CHEST PAIN
     Route: 065
     Dates: start: 20060101, end: 20060101

REACTIONS (4)
  - ACUTE CORONARY SYNDROME [None]
  - ARTERIOSCLEROSIS CORONARY ARTERY [None]
  - HYPERSENSITIVITY [None]
  - LEUKOCYTOSIS [None]
